FAERS Safety Report 5799246-X (Version None)
Quarter: 2008Q3

REPORT INFORMATION
  Report Type: 
  Country: None (occurrence: None)
  Receive Date: 20080701
  Receipt Date: 20080623
  Transmission Date: 20090109
  Serious: Yes (Other)
  Sender: FDA-Public Use
  Company Number: 2008016681

PATIENT
  Age: 66 Year
  Sex: Female

DRUGS (2)
  1. ZYRTEC-D 12 HOUR [Suspect]
     Indication: RHINITIS ALLERGIC
     Dosage: (1 IN 1 D), ORAL
     Route: 048
     Dates: start: 20080501, end: 20080522
  2. ASTELIN [Suspect]
     Indication: RHINITIS ALLERGIC
     Dosage: 1096 MCG (548 MCG,2 IN 1 D),NASAL
     Route: 045
     Dates: start: 20071201

REACTIONS (1)
  - BLOOD PRESSURE INCREASED [None]
